FAERS Safety Report 20719352 (Version 1)
Quarter: 2022Q2

REPORT INFORMATION
  Report Type: Spontaneous
  Country: US (occurrence: None)
  Receive Date: 20220415
  Receipt Date: 20220415
  Transmission Date: 20220720
  Serious: Yes (unspecified)
  Sender: FDA-Public Use
  Company Number: None

PATIENT
  Age: 48 Year
  Sex: Male
  Weight: 136.98 kg

DRUGS (1)
  1. BEBTELOVIMAB [Suspect]
     Active Substance: BEBTELOVIMAB
     Indication: SARS-CoV-2 test positive
     Dosage: 175MG/2ML 1 X DOSE IV  PUSH 30 SEC? ?
     Route: 042
     Dates: start: 20220415, end: 20220415

REACTIONS (3)
  - Infusion related reaction [None]
  - Dyspnoea [None]
  - Chest discomfort [None]

NARRATIVE: CASE EVENT DATE: 20220415
